FAERS Safety Report 8110204-2 (Version None)
Quarter: 2012Q1

REPORT INFORMATION
  Report Type: 
  Country: None (occurrence: None)
  Receive Date: 20120202
  Receipt Date: 20120126
  Transmission Date: 20120608
  Serious: Yes (Other)
  Sender: FDA-Public Use
  Company Number: US-AMGEN-USASP2011023721

PATIENT
  Age: 49 Year
  Sex: Male
  Weight: 72.56 kg

DRUGS (3)
  1. ADALIMUMAB [Concomitant]
     Dates: start: 20080101
  2. ENBREL [Suspect]
     Indication: PSORIASIS
     Dosage: 50 MG, QWK
     Route: 058
     Dates: start: 20040513, end: 20081120
  3. ENBREL [Suspect]
     Dosage: 50 MG, QWK
     Route: 058
     Dates: start: 20090604, end: 20101112

REACTIONS (1)
  - LYMPHOMA [None]
